FAERS Safety Report 7916700-2 (Version None)
Quarter: 2011Q4

REPORT INFORMATION
  Report Type: 
  Country: None (occurrence: None)
  Receive Date: 20111114
  Receipt Date: 20111110
  Transmission Date: 20120403
  Serious: Yes (Hospitalization)
  Sender: FDA-Public Use
  Company Number: 2011SP017555

PATIENT
  Age: 17 Year
  Sex: Female
  Weight: 52.1637 kg

DRUGS (7)
  1. LORAZEPAM [Concomitant]
  2. VYVANSE [Concomitant]
  3. SERTRALINE HYDROCHLORIDE [Concomitant]
  4. NUVARING [Suspect]
     Indication: MENSTRUAL CYCLE MANAGEMENT
     Dosage: QM;VAG
     Route: 067
     Dates: start: 20070501, end: 20090419
  5. NUVARING [Suspect]
     Indication: CONTRACEPTION
     Dosage: QM;VAG
     Route: 067
     Dates: start: 20070501, end: 20090419
  6. NUVARING [Suspect]
     Indication: DYSMENORRHOEA
     Dosage: QM;VAG
     Route: 067
     Dates: start: 20070501, end: 20090419
  7. NUVARING [Suspect]
     Indication: OVARIAN CYST
     Dosage: QM;VAG
     Route: 067
     Dates: start: 20070501, end: 20090419

REACTIONS (18)
  - HEADACHE [None]
  - HYPERCOAGULATION [None]
  - HAND FRACTURE [None]
  - SUBSTANCE USE [None]
  - SPUTUM ABNORMAL [None]
  - HAEMOPTYSIS [None]
  - HEAD INJURY [None]
  - PNEUMONITIS [None]
  - WITHDRAWAL BLEED [None]
  - ATELECTASIS [None]
  - PULMONARY INFARCTION [None]
  - PULMONARY EMBOLISM [None]
  - ANXIETY [None]
  - ALCOHOL USE [None]
  - VULVOVAGINAL CANDIDIASIS [None]
  - PLEURAL EFFUSION [None]
  - RETINAL ARTERIOVENOUS MALFORMATION [None]
  - VAGINAL HAEMORRHAGE [None]
